FAERS Safety Report 8837372 (Version 1)
Quarter: 2012Q4

REPORT INFORMATION
  Report Type: 
  Country: US (occurrence: GR)
  Receive Date: 20121012
  Receipt Date: 20121012
  Transmission Date: 20130627
  Serious: Yes (Death)
  Sender: FDA-Public Use
  Company Number: US-PFIZER INC-K200301603

PATIENT
  Age: 43 Year
  Sex: Male

DRUGS (2)
  1. SEPTRA [Suspect]
     Indication: ACQUIRED IMMUNODEFICIENCY SYNDROME
     Dosage: 480 mg, 1x/day
     Route: 030
     Dates: start: 20030620, end: 20030624
  2. TAZOCIN [Suspect]
     Indication: ACQUIRED IMMUNODEFICIENCY SYNDROME
     Dosage: UNK
     Route: 030
     Dates: start: 20030611, end: 20030624

REACTIONS (2)
  - Toxic epidermal necrolysis [Fatal]
  - Disseminated intravascular coagulation [Fatal]
